FAERS Safety Report 25943816 (Version 1)
Quarter: 2025Q4

REPORT INFORMATION
  Report Type: Spontaneous
  Country: EU (occurrence: EU)
  Receive Date: 20251021
  Receipt Date: 20251021
  Transmission Date: 20260117
  Serious: Yes (Life-Threatening, Hospitalization, Other)
  Sender: CIPLA
  Company Number: EU-BFARM-25007082

PATIENT

DRUGS (2)
  1. DAPAGLIFLOZIN [Suspect]
     Active Substance: DAPAGLIFLOZIN
     Indication: Type 2 diabetes mellitus
     Dosage: 10 MILLIGRAM, QD
     Route: 048
     Dates: start: 20241021
  2. ERTUGLIFLOZIN\SITAGLIPTIN [Suspect]
     Active Substance: ERTUGLIFLOZIN\SITAGLIPTIN
     Indication: Product used for unknown indication
     Dosage: UNK (5/100)
     Route: 048
     Dates: end: 20241024

REACTIONS (4)
  - Fournier^s gangrene [Not Recovered/Not Resolved]
  - Confusional state [Unknown]
  - Disorientation [Unknown]
  - Swelling [Unknown]

NARRATIVE: CASE EVENT DATE: 20250531
